FAERS Safety Report 14498221 (Version 1)
Quarter: 2018Q1

REPORT INFORMATION
  Report Type: Spontaneous
  Country: US (occurrence: US)
  Receive Date: 20180206
  Receipt Date: 20180206
  Transmission Date: 20180509
  Serious: No
  Sender: FDA-Public Use
  Company Number: None

PATIENT
  Age: 4 Year
  Sex: Female
  Weight: 13.95 kg

DRUGS (5)
  1. TAMIFLU [Suspect]
     Active Substance: OSELTAMIVIR PHOSPHATE
     Indication: INFLUENZA
     Dosage: ?          QUANTITY:.255 OUNCE(S);?
     Route: 048
     Dates: start: 20180122, end: 20180124
  2. IBUPROFEN. [Concomitant]
     Active Substance: IBUPROFEN
  3. ACETAMINOPHEN. [Concomitant]
     Active Substance: ACETAMINOPHEN
  4. FLINSTONE^S VITAMIN [Concomitant]
  5. ALLERGY MEF [Concomitant]

REACTIONS (4)
  - Nightmare [None]
  - Abnormal behaviour [None]
  - Disturbance in attention [None]
  - Screaming [None]

NARRATIVE: CASE EVENT DATE: 20180123
